FAERS Safety Report 5091915-2 (Version None)
Quarter: 2006Q3

REPORT INFORMATION
  Report Type: 
  Country: None (occurrence: None)
  Receive Date: 20060825
  Receipt Date: 20060811
  Transmission Date: 20061208
  Serious: Yes (Hospitalization)
  Sender: FDA-Public Use
  Company Number: S06-FRA-03364-01

PATIENT
  Age: 90 Year
  Sex: Female

DRUGS (5)
  1. SEROPRAM (CITALOPRAM HYDROBROMIDE) [Suspect]
  2. SPIROCTAZINE [Suspect]
     Dates: end: 20060711
  3. PRAXINOR [Suspect]
     Dates: end: 20060711
  4. SERMION (NICERGOLINE) [Suspect]
     Dosage: 5 MG TID PO
     Route: 048
     Dates: end: 20060711
  5. FENOFIBRATE [Suspect]
     Dosage: 200 MG QD PO
     Route: 048
     Dates: end: 20060711

REACTIONS (3)
  - ABDOMINAL PAIN UPPER [None]
  - ANOREXIA [None]
  - GENERAL PHYSICAL HEALTH DETERIORATION [None]
